FAERS Safety Report 16418441 (Version 7)
Quarter: 2021Q1

REPORT INFORMATION
  Report Type: Report from Study
  Country: CN (occurrence: CN)
  Receive Date: 20190612
  Receipt Date: 20210323
  Transmission Date: 20210419
  Serious: Yes (Hospitalization)
  Sender: FDA-Public Use
  Company Number: CN-AMGEN-CHNCT2019091293

PATIENT
  Age: 26 Year
  Sex: Female
  Weight: 47 kg

DRUGS (16)
  1. BLINATUMOMAB [Suspect]
     Active Substance: BLINATUMOMAB
     Indication: B PRECURSOR TYPE ACUTE LEUKAEMIA
     Dosage: 28 MICROGRAM, QD
     Route: 042
     Dates: start: 20190525
  2. COMPOUND PARACETAMOL [Concomitant]
     Dosage: 1 UNK
     Route: 048
     Dates: start: 20190525, end: 20190525
  3. PIPERACILLIN SODIUM;TAZOBACTAM [Concomitant]
     Active Substance: PIPERACILLIN SODIUM\TAZOBACTAM SODIUM
     Dosage: 4.5 GRAM
     Route: 042
     Dates: start: 20190527, end: 20190604
  4. IBUPROFEN [IBUPROFEN SODIUM] [Concomitant]
     Active Substance: IBUPROFEN SODIUM
     Dosage: 0.2 GRAM AND 15 MILLILITER
     Route: 048
     Dates: start: 20190603, end: 20190605
  5. BLINATUMOMAB [Suspect]
     Active Substance: BLINATUMOMAB
     Dosage: 9 MICROGRAM, QD
     Route: 042
     Dates: start: 20190613
  6. CEFACLOR. [Concomitant]
     Active Substance: CEFACLOR
     Dosage: 375 MILLIGRAM
     Route: 048
     Dates: start: 20190526, end: 20190527
  7. MEROPENEM. [Concomitant]
     Active Substance: MEROPENEM
     Dosage: 1000 MILLIGRAM
     Route: 042
     Dates: start: 20190604, end: 20190617
  8. DEXAMETHASONE. [Concomitant]
     Active Substance: DEXAMETHASONE
     Dosage: 3?20 MILLIGRAM
     Dates: start: 20190525, end: 20190620
  9. POTASSIUM CHLORIDE. [Concomitant]
     Active Substance: POTASSIUM CHLORIDE
     Dosage: 500 MILLIGRAM AND 20 MILLILITER
     Dates: start: 20190602, end: 20190610
  10. LIDOCAINE. [Concomitant]
     Active Substance: LIDOCAINE
     Dosage: 100 MILLIGRAM
     Route: 058
     Dates: start: 20190523, end: 20190524
  11. ADEMETIONINE 1,4?BUTANEDISULFONATE [Concomitant]
     Active Substance: ADEMETIONINE BUTANEDISULFONATE
     Dosage: 1000 MILLIGRAM
     Route: 042
     Dates: start: 20190603, end: 20190710
  12. HEPARIN SODIUM. [Concomitant]
     Active Substance: HEPARIN SODIUM
     Dosage: 12500 UNK
     Route: 042
     Dates: start: 20190531, end: 20190712
  13. METHYLPREDNISOLONE. [Concomitant]
     Active Substance: METHYLPREDNISOLONE
     Dosage: 40 MILLIGRAM
     Route: 042
     Dates: start: 20190604, end: 20190604
  14. OMEPRAZOLE SODIUM [Concomitant]
     Active Substance: OMEPRAZOLE SODIUM
     Dosage: 40 MILLIGRAM
     Route: 042
     Dates: start: 20190524, end: 20190712
  15. COMPOUND GUAIFENESIN [Concomitant]
     Dosage: 10 MILLILITER
     Route: 048
     Dates: start: 20190526, end: 20190607
  16. REDUCED GLUTATHIONE SODIUM [Concomitant]
     Active Substance: GLUTATHIONE
     Dosage: 1200 MILLIGRAM
     Route: 042
     Dates: start: 20190524, end: 20190712

REACTIONS (1)
  - Epilepsy [Recovered/Resolved]

NARRATIVE: CASE EVENT DATE: 20190606
